FAERS Safety Report 6483341-6 (Version None)
Quarter: 2009Q4

REPORT INFORMATION
  Report Type: 
  Country: None (occurrence: None)
  Receive Date: 20091209
  Receipt Date: 20090427
  Transmission Date: 20100525
  Serious: No
  Sender: FDA-Public Use
  Company Number: US-AMGEN-KDL344699

PATIENT
  Sex: Male

DRUGS (2)
  1. ENBREL [Suspect]
     Indication: JUVENILE ARTHRITIS
     Route: 058
     Dates: start: 20061201
  2. METHOTREXATE [Concomitant]

REACTIONS (5)
  - LOWER RESPIRATORY TRACT INFECTION [None]
  - PROTEIN URINE [None]
  - RED BLOOD CELL SEDIMENTATION RATE DECREASED [None]
  - RHEUMATOID ARTHRITIS [None]
  - URINE KETONE BODY PRESENT [None]
